FAERS Safety Report 12456809 (Version 1)
Quarter: 2016Q2

REPORT INFORMATION
  Report Type: Spontaneous
  Country: CA (occurrence: CA)
  Receive Date: 20160610
  Receipt Date: 20160610
  Transmission Date: 20160815
  Serious: Yes (Other)
  Sender: FDA-Public Use
  Company Number: CA-PURDUE PHARMA-CAN-2016-0006787

PATIENT
  Age: 6 Year
  Sex: Male

DRUGS (5)
  1. AMOXICILLIN. [Interacting]
     Active Substance: AMOXICILLIN
     Dosage: 9.4 ML, BID
     Route: 065
     Dates: start: 20160526, end: 20160604
  2. CLAVULIN                           /00756801/ [Interacting]
     Active Substance: AMOXICILLIN\CLAVULANIC ACID
     Indication: OTITIS MEDIA
     Dosage: 5.9 ML, BID
     Route: 065
     Dates: start: 20160526, end: 20160604
  3. BIPHENTIN 15 MG CAPSULE [Suspect]
     Active Substance: METHYLPHENIDATE HYDROCHLORIDE
     Indication: ATTENTION DEFICIT/HYPERACTIVITY DISORDER
     Dosage: 15 MG, DAILY
     Route: 048
     Dates: start: 201511
  4. BIPHENTIN 10 MG CAPSULE [Suspect]
     Active Substance: METHYLPHENIDATE
     Indication: ATTENTION DEFICIT/HYPERACTIVITY DISORDER
     Dosage: 10 MG, DAILY
     Route: 048
     Dates: start: 2015, end: 201511
  5. AMOXICILLIN. [Interacting]
     Active Substance: AMOXICILLIN
     Indication: OTITIS MEDIA
     Dosage: 17 ML, BID
     Route: 065
     Dates: start: 201604

REACTIONS (6)
  - Impulsive behaviour [Recovered/Resolved]
  - Aggression [Recovered/Resolved]
  - Drug ineffective [Recovered/Resolved]
  - Off label use [Recovered/Resolved]
  - Drug interaction [Recovered/Resolved]
  - Otitis media [Unknown]

NARRATIVE: CASE EVENT DATE: 201604
